FAERS Safety Report 18228953 (Version 1)
Quarter: 2020Q3

REPORT INFORMATION
  Report Type: Spontaneous
  Country: US (occurrence: US)
  Receive Date: 20200903
  Receipt Date: 20200903
  Transmission Date: 20201103
  Serious: No
  Sender: FDA-Public Use
  Company Number: US-PFIZER INC-2016085160

PATIENT
  Age: 47 Year
  Sex: Female

DRUGS (15)
  1. LYRICA [Suspect]
     Active Substance: PREGABALIN
     Indication: FIBROMYALGIA
     Dosage: 225 MG, 1X/DAY [1 BY MOUTH TAKEN 1?2 HOURS BEFORE BEDTIME]
     Route: 048
     Dates: start: 20151027
  2. BUPROPION SR [Concomitant]
     Active Substance: BUPROPION HYDROCHLORIDE
     Indication: DEPRESSION
     Dosage: 200 MG, 1X/DAY
     Dates: start: 20130828
  3. DICYCLOMINE [Concomitant]
     Active Substance: DICYCLOMINE HYDROCHLORIDE
     Indication: IRRITABLE BOWEL SYNDROME
     Dosage: 20 MG, AS NEEDED [TAKE 1 TAB?AS NEEDED ]
  4. LYRICA [Suspect]
     Active Substance: PREGABALIN
     Dosage: UNK (HALF OF THE DOSE THAT SHE SHOULD BE TAKING)
  5. ESOMEPRAZOLE MAGNESIUM. [Concomitant]
     Active Substance: ESOMEPRAZOLE MAGNESIUM
     Indication: GASTROOESOPHAGEAL REFLUX DISEASE
     Dosage: 40 MG, 1X/DAY
  6. TRINESSA?28 [Concomitant]
     Dosage: 1 DF, DAILY (0.18/0.215/0.25 MG?35 MCG TAB)
     Dates: start: 20131030
  7. LYRICA [Suspect]
     Active Substance: PREGABALIN
     Dosage: 150 MG, 1X/DAY (MORNING )
     Dates: start: 20160517
  8. OXYCODONE AND ACETAMINOPHEN [Concomitant]
     Active Substance: ACETAMINOPHEN\OXYCODONE HYDROCHLORIDE
     Indication: PAIN
     Dosage: 1 DF, AS NEEDED [OXYCODONE HYDROCHLORIDE?10 MG]/[PARACETAMOL?325 MG]
     Dates: start: 20130828
  9. PREVACID [Concomitant]
     Active Substance: LANSOPRAZOLE
     Dosage: 30 MG, 1X/DAY [1 TABLET ONCE A DAY]
     Dates: start: 20130828
  10. SPIRONOLACTONE. [Concomitant]
     Active Substance: SPIRONOLACTONE
     Dosage: 25 MG, 1X/DAY [1 TABLET ONCE A DAY]
     Route: 048
     Dates: start: 20130828
  11. KLOR?CON [Concomitant]
     Active Substance: POTASSIUM CHLORIDE
     Indication: BLOOD POTASSIUM DECREASED
     Dosage: 20 MG, 1X/DAY
     Dates: start: 20151027
  12. CHLORTHALIDONE. [Concomitant]
     Active Substance: CHLORTHALIDONE
     Indication: BLOOD PRESSURE ABNORMAL
     Dosage: 50 MG, 2X/DAY (50 MG, 2 TABS ONCE A DAY)
     Dates: start: 20140428
  13. SONATA [Concomitant]
     Active Substance: ZALEPLON
     Dosage: 5 MG, 1X/DAY [QHS]
     Route: 048
     Dates: start: 20150107
  14. CIPRO [Concomitant]
     Active Substance: CIPROFLOXACIN HYDROCHLORIDE
     Indication: ABDOMINAL DISCOMFORT
     Dosage: UNK
  15. SUMATRIPTAN SUCCINATE. [Concomitant]
     Active Substance: SUMATRIPTAN SUCCINATE
     Indication: MIGRAINE
     Dosage: 100 MG, AS NEEDED
     Dates: start: 20130828

REACTIONS (2)
  - Intentional product use issue [Unknown]
  - Illness [Unknown]
